FAERS Safety Report 7370056-5 (Version None)
Quarter: 2011Q1

REPORT INFORMATION
  Report Type: 
  Country: None (occurrence: None)
  Receive Date: 20110323
  Receipt Date: 20110309
  Transmission Date: 20110831
  Serious: Yes (Other)
  Sender: FDA-Public Use
  Company Number: PHHY2011JP20631

PATIENT
  Age: 40 Year
  Sex: Female

DRUGS (4)
  1. CYCLOSPORINE [Suspect]
     Indication: ALLOGENIC BONE MARROW TRANSPLANTATION THERAPY
  2. MELPHALAN [Concomitant]
  3. METHOTREXATE [Concomitant]
  4. DRUG THERAPY NOS [Concomitant]

REACTIONS (2)
  - MYELITIS TRANSVERSE [None]
  - ACUTE GRAFT VERSUS HOST DISEASE IN SKIN [None]
